FAERS Safety Report 8044351-0 (Version None)
Quarter: 2012Q1

REPORT INFORMATION
  Report Type: 
  Country: None (occurrence: None)
  Receive Date: 20120113
  Receipt Date: 20120113
  Transmission Date: 20120608
  Serious: Yes (Hospitalization)
  Sender: FDA-Public Use
  Company Number: IT-SANOFI-AVENTIS-2012SA002335

PATIENT

DRUGS (8)
  1. ELOXATIN [Suspect]
     Route: 042
     Dates: start: 20080226, end: 20080226
  2. CALFOLEX [Concomitant]
     Route: 042
     Dates: start: 20080429, end: 20080429
  3. ELOXATIN [Suspect]
     Route: 042
     Dates: start: 20080429, end: 20080429
  4. FLUOROURACIL [Concomitant]
     Route: 040
     Dates: start: 20080226, end: 20080226
  5. FLUOROURACIL [Concomitant]
     Route: 040
     Dates: start: 20080429, end: 20080429
  6. CALFOLEX [Concomitant]
     Route: 042
     Dates: start: 20080226, end: 20080226
  7. FLUOROURACIL [Concomitant]
     Route: 041
     Dates: start: 20080226, end: 20080226
  8. FLUOROURACIL [Concomitant]
     Route: 041
     Dates: start: 20080429, end: 20080429

REACTIONS (2)
  - EMBOLISM [None]
  - ATRIAL FIBRILLATION [None]
